FAERS Safety Report 5809385-2 (Version None)
Quarter: 2008Q3

REPORT INFORMATION
  Report Type: 
  Country: None (occurrence: None)
  Receive Date: 20080714
  Receipt Date: 20080710
  Transmission Date: 20090109
  Serious: Yes (Death, Hospitalization, Other)
  Sender: FDA-Public Use
  Company Number: PHEH2007US16202

PATIENT
  Sex: Male

DRUGS (10)
  1. EXJADE [Suspect]
     Indication: IRON OVERLOAD
     Dosage: 1000 MG QD
     Route: 048
     Dates: start: 20070601, end: 20071201
  2. EXJADE [Suspect]
     Indication: TRANSFUSION
  3. FLORINEF [Concomitant]
     Dosage: 0.1 MG, QD
  4. REGLAN [Concomitant]
     Dosage: 5 MG, PRN
  5. AMIODARONE HCL [Concomitant]
     Dosage: 200 MG, QD
  6. ACETYLSALICYLIC ACID SRT [Concomitant]
     Dosage: 81 MG, QD
  7. PROTONIX [Concomitant]
     Dosage: 40 MG, QD
  8. CARDIZEM CD [Concomitant]
     Dosage: 120 MG, QD
  9. ACETAMINOPHEN [Concomitant]
     Dosage: 325 MG, PRN
  10. ACETAMINOPHEN [Concomitant]
     Dosage: 650 MG, PRN
     Route: 054

REACTIONS (24)
  - ABDOMINAL DISTENSION [None]
  - ABDOMINAL PAIN UPPER [None]
  - BLOOD CALCIUM DECREASED [None]
  - BLOOD SODIUM DECREASED [None]
  - BREATH SOUNDS ABNORMAL [None]
  - COUGH [None]
  - DYSPNOEA [None]
  - FAECAL INCONTINENCE [None]
  - FALL [None]
  - GASTROINTESTINAL DISORDER [None]
  - HAEMATOCRIT DECREASED [None]
  - HAEMATURIA [None]
  - HAEMOGLOBIN DECREASED [None]
  - IRON BINDING CAPACITY TOTAL DECREASED [None]
  - KLEBSIELLA INFECTION [None]
  - MYELODYSPLASTIC SYNDROME [None]
  - PLATELET COUNT DECREASED [None]
  - PNEUMONIA [None]
  - RED BLOOD CELL COUNT DECREASED [None]
  - RHONCHI [None]
  - SERUM FERRITIN INCREASED [None]
  - URINARY INCONTINENCE [None]
  - VENOUS INSUFFICIENCY [None]
  - WHITE BLOOD CELL COUNT INCREASED [None]
